FAERS Safety Report 8494639-4 (Version None)
Quarter: 2012Q3

REPORT INFORMATION
  Report Type: 
  Country: None (occurrence: None)
  Receive Date: 20120709
  Receipt Date: 20120628
  Transmission Date: 20120928
  Serious: Yes (Hospitalization)
  Sender: FDA-Public Use
  Company Number: CA-JNJFOC-20120614775

PATIENT
  Sex: Male
  Weight: 79.6 kg

DRUGS (4)
  1. LOMOTIL [Concomitant]
     Indication: COLITIS ULCERATIVE
     Dosage: PRN
     Route: 065
  2. REMICADE [Suspect]
     Indication: COLITIS ULCERATIVE
     Dosage: WEEK 0
     Route: 042
     Dates: start: 20120323
  3. REMICADE [Suspect]
     Dosage: WEEK 2
     Route: 042
     Dates: start: 20120405
  4. PERCOCET [Concomitant]
     Indication: PAIN
     Dosage: PRN
     Route: 065

REACTIONS (3)
  - GASTROINTESTINAL INFLAMMATION [None]
  - ANAL ABSCESS [None]
  - ANAL FISTULA [None]
